FAERS Safety Report 10502598 (Version 2)
Quarter: 2014Q4

REPORT INFORMATION
  Report Type: Spontaneous
  Country: US (occurrence: None)
  Receive Date: 20141003
  Receipt Date: 20141121
  Transmission Date: 20150528
  Serious: Yes (Hospitalization)
  Sender: FDA-Public Use
  Company Number: 2014US0425

PATIENT
  Age: 24 Year
  Sex: Female

DRUGS (1)
  1. ANAKINRA [Suspect]
     Active Substance: ANAKINRA
     Indication: FAMILIAL COLD AUTOINFLAMMATORY SYNDROME
     Dosage: 100 MG, 1 IN 1 D

REACTIONS (3)
  - Exposure during pregnancy [None]
  - Induced labour [None]
  - Pyrexia [None]
